FAERS Safety Report 8206005-7 (Version None)
Quarter: 2012Q1

REPORT INFORMATION
  Report Type: 
  Country: None (occurrence: None)
  Receive Date: 20120313
  Receipt Date: 20120229
  Transmission Date: 20120608
  Serious: Yes (Death, Life-Threatening, Hospitalization)
  Sender: FDA-Public Use
  Company Number: CN-FRI-1000025366

PATIENT
  Sex: Male
  Weight: 75 kg

DRUGS (5)
  1. ALBUTEROL [Concomitant]
     Route: 055
     Dates: start: 20110815, end: 20111027
  2. ROFLUMILAST [Suspect]
     Indication: CHRONIC OBSTRUCTIVE PULMONARY DISEASE
     Route: 048
     Dates: start: 20110916, end: 20111029
  3. ROFLUMILAST (DOUBLE-BLIND) [Suspect]
     Indication: CHRONIC OBSTRUCTIVE PULMONARY DISEASE
     Route: 048
     Dates: start: 20110916, end: 20111029
  4. TIOPRONIN [Concomitant]
     Indication: CHRONIC OBSTRUCTIVE PULMONARY DISEASE
     Route: 055
     Dates: start: 20080101
  5. TRADITIONAL CHINESE MEDICINE [Concomitant]
     Route: 048

REACTIONS (2)
  - HEPATITIS B [None]
  - LIVER INJURY [None]
